FAERS Safety Report 10027386 (Version 1)
Quarter: 2014Q1

REPORT INFORMATION
  Report Type: Spontaneous
  Country: FR (occurrence: None)
  Receive Date: 20140318
  Receipt Date: 20140318
  Transmission Date: 20141002
  Serious: Yes (Other)
  Sender: FDA-Public Use
  Company Number: 2012RT000004

PATIENT
  Age: 66 Year
  Sex: Female

DRUGS (4)
  1. CYSTEAMINE BITARTRATE [Suspect]
     Indication: HUNTINGTON^S DISEASE
     Route: 048
     Dates: start: 20110919, end: 20120525
  2. CITALOPRAM [Concomitant]
  3. ALPRAZOLAM [Concomitant]
  4. OLANZAPINE [Concomitant]

REACTIONS (2)
  - Hepatocellular injury [None]
  - Epstein-Barr virus test positive [None]
